FAERS Safety Report 17203992 (Version 4)
Quarter: 2022Q1

REPORT INFORMATION
  Report Type: Spontaneous
  Country: CA (occurrence: CA)
  Receive Date: 20191226
  Receipt Date: 20220130
  Transmission Date: 20220423
  Serious: Yes (Death, Hospitalization, Other)
  Sender: FDA-Public Use
  Company Number: CA-EUSA PHARMA-2014-CA-005426

PATIENT
  Age: 3 Month
  Sex: Male

DRUGS (13)
  1. ERWINASE [Suspect]
     Active Substance: ASPARAGINASE ERWINIA CHRYSANTHEMI
     Indication: Acute myeloid leukaemia
     Dosage: 5 CYCLES, (2 INDUCTIONS AND 3 INTENSIFICATIONS)
     Route: 030
  2. ERWINASE [Suspect]
     Active Substance: ASPARAGINASE ERWINIA CHRYSANTHEMI
     Indication: Chloroma
  3. CYTARABINE [Suspect]
     Active Substance: CYTARABINE
     Indication: Chloroma
     Dosage: 2 TIMES WEEKLY, 5 CYCLES, (2 INDUCTIONS AND 3 INTENSIFICATIONS)
     Route: 037
     Dates: end: 201112
  4. CYTARABINE [Suspect]
     Active Substance: CYTARABINE
     Indication: Acute myeloid leukaemia
  5. ETOPOSIDE PHOSPHATE [Suspect]
     Active Substance: ETOPOSIDE PHOSPHATE
     Indication: Chloroma
     Dosage: 5 CYCLES, (2 INDUCTIONS AND 3 INTENSIFICATION)
     Route: 037
     Dates: end: 201112
  6. ETOPOSIDE PHOSPHATE [Suspect]
     Active Substance: ETOPOSIDE PHOSPHATE
     Indication: Acute myeloid leukaemia
  7. DAUNORUBICIN HYDROCHLORIDE [Suspect]
     Active Substance: DAUNORUBICIN HYDROCHLORIDE
     Indication: Chloroma
     Dosage: 5 CYCLES, (2 INDUCTIONS AND 3 INTENSIFICATION)
     Route: 037
     Dates: end: 201112
  8. FLUDARABINE [Suspect]
     Active Substance: FLUDARABINE PHOSPHATE
     Indication: Acute myeloid leukaemia
     Dosage: 5-DAY COURSE
     Route: 042
  9. FLUDARABINE [Suspect]
     Active Substance: FLUDARABINE PHOSPHATE
     Indication: Brain sarcoma
  10. HYDROCORTISONE SODIUM SUCCINATE [Suspect]
     Active Substance: HYDROCORTISONE SODIUM SUCCINATE
     Indication: Acute myeloid leukaemia
     Route: 037
  11. HYDROCORTISONE SODIUM SUCCINATE [Suspect]
     Active Substance: HYDROCORTISONE SODIUM SUCCINATE
     Indication: Brain sarcoma
  12. METHOTREXATE [Suspect]
     Active Substance: METHOTREXATE
     Indication: Acute myeloid leukaemia
     Route: 037
  13. METHOTREXATE [Suspect]
     Active Substance: METHOTREXATE
     Indication: Brain sarcoma

REACTIONS (7)
  - Septic shock [Fatal]
  - Infection [Recovered/Resolved]
  - Pyrexia [Unknown]
  - Brain sarcoma [Unknown]
  - Leukaemia recurrent [Unknown]
  - Cerebellar tumour [Unknown]
  - Hydrocephalus [Unknown]
